FAERS Safety Report 5028757-X (Version None)
Quarter: 2006Q2

REPORT INFORMATION
  Report Type: 
  Country: None (occurrence: None)
  Receive Date: 20060619
  Receipt Date: 20060331
  Transmission Date: 20061013
  Serious: No
  Sender: FDA-Public Use
  Company Number: US-BRISTOL-MYERS SQUIBB COMPANY-13343876

PATIENT

DRUGS (1)
  1. MITOMYCIN [Suspect]

REACTIONS (1)
  - ALOPECIA [None]
